FAERS Safety Report 8025811-5 (Version None)
Quarter: 2012Q1

REPORT INFORMATION
  Report Type: 
  Country: None (occurrence: None)
  Receive Date: 20120105
  Receipt Date: 20110815
  Transmission Date: 20120608
  Serious: No
  Sender: FDA-Public Use
  Company Number: US-ABBOTT-11P-163-0846963-00

PATIENT
  Age: 74 Year
  Sex: Female
  Weight: 52.664 kg

DRUGS (2)
  1. SYNTHROID [Suspect]
     Indication: HYPOTHYROIDISM
     Dates: start: 19910101
  2. NEXIUM [Concomitant]
     Indication: PRODUCT USED FOR UNKNOWN INDICATION

REACTIONS (4)
  - THINKING ABNORMAL [None]
  - DIARRHOEA [None]
  - GLAUCOMA [None]
  - COELIAC DISEASE [None]
